FAERS Safety Report 14244419 (Version 1)
Quarter: 2017Q4

REPORT INFORMATION
  Report Type: Spontaneous
  Country: BR (occurrence: BR)
  Receive Date: 20171201
  Receipt Date: 20171201
  Transmission Date: 20180321
  Serious: Yes (Other)
  Sender: FDA-Public Use
  Company Number: BR-BAYER-2017-045163

PATIENT
  Age: 18 Year
  Sex: Female
  Weight: 62 kg

DRUGS (1)
  1. YAZ [Suspect]
     Active Substance: DROSPIRENONE\ETHINYL ESTRADIOL
     Indication: MENSTRUAL CYCLE MANAGEMENT
     Dosage: 1 DF, QD
     Route: 048
     Dates: start: 201405, end: 201612

REACTIONS (9)
  - Drug ineffective [Not Recovered/Not Resolved]
  - Migraine [Not Recovered/Not Resolved]
  - Product use in unapproved indication [None]
  - Cervix dystocia [None]
  - Amniorrhoea [None]
  - Pregnancy on oral contraceptive [Recovered/Resolved]
  - Premature delivery [None]
  - Incorrect drug administration duration [None]
  - Haemorrhage in pregnancy [None]

NARRATIVE: CASE EVENT DATE: 201610
